FAERS Safety Report 4370062-9 (Version None)
Quarter: 2004Q2

REPORT INFORMATION
  Report Type: 
  Country: None (occurrence: None)
  Receive Date: 20040525
  Receipt Date: 20040512
  Transmission Date: 20050107
  Serious: Yes (Other)
  Sender: FDA-Public Use
  Company Number: 061-0981-M0100366

PATIENT
  Age: 69 Year
  Sex: Female

DRUGS (5)
  1. LIPITOR [Suspect]
     Indication: HYPERLIPIDAEMIA
     Dosage: 10 MG(DAILY), ORAL
     Route: 048
  2. DILTIAZEM [Concomitant]
  3. KARVEZIDE(HYDROCHLOROTHIAZIDE, IRBESARTAN) [Concomitant]
  4. RANITIDINE [Concomitant]
  5. NITROGLYCERIN [Concomitant]

REACTIONS (2)
  - BLOOD MAGNESIUM DECREASED [None]
  - RHABDOMYOLYSIS [None]
